FAERS Safety Report 4416899-9 (Version None)
Quarter: 2004Q3

REPORT INFORMATION
  Report Type: 
  Country: None (occurrence: None)
  Receive Date: 20040806
  Receipt Date: 20040716
  Transmission Date: 20050211
  Serious: Yes (Hospitalization)
  Sender: FDA-Public Use
  Company Number: US-BRISTOL-MYERS SQUIBB COMPANY-12641874

PATIENT
  Age: 71 Year
  Sex: Male
  Weight: 76 kg

DRUGS (4)
  1. CETUXIMAB [Suspect]
     Indication: PANCREATIC CARCINOMA
     Dosage: TOTAL DOSE ADMINISTERED THIS COURSE = 3531.5 MG. DOSE DELAYED 7 DAYS.
     Route: 042
     Dates: start: 20040630, end: 20040630
  2. DOCETAXEL [Suspect]
     Indication: PANCREATIC CARCINOMA
     Dosage: TOTAL DOSE ADMINISTERED THIS COURSE = 286 MG. DOSE DELAYED 7 DAYS.
     Route: 042
     Dates: start: 20040609, end: 20040609
  3. IRINOTECAN [Suspect]
     Indication: PANCREATIC CARCINOMA
     Dosage: TOTAL DOSE ADMINISTERED THIS COURSE = 348 MG. DOSE DELAYED 7 DAYS.
     Route: 042
     Dates: start: 20040609, end: 20040609
  4. COUMADIN [Concomitant]

REACTIONS (3)
  - DEHYDRATION [None]
  - DIARRHOEA [None]
  - GASTRITIS [None]
